FAERS Safety Report 11614990 (Version 3)
Quarter: 2015Q4

REPORT INFORMATION
  Report Type: Spontaneous
  Country: US (occurrence: US)
  Receive Date: 20151009
  Receipt Date: 20151014
  Transmission Date: 20160304
  Serious: Yes (Other)
  Sender: FDA-Public Use
  Company Number: US-JNJFOC-20151000619

PATIENT
  Age: 18 Year
  Sex: Female

DRUGS (18)
  1. EGEN-001 [Suspect]
     Active Substance: INVESTIGATIONAL PRODUCT
     Indication: MALIGNANT PERITONEAL NEOPLASM
     Dosage: ON DAYS 1, 8, 15, AND 22 OF A 28 DAY CYCLE
     Route: 033
  2. EGEN-001 [Suspect]
     Active Substance: INVESTIGATIONAL PRODUCT
     Indication: MALIGNANT PERITONEAL NEOPLASM
     Dosage: ON DAYS 1, 8, 15, AND 22 OF A 28 DAY CYCLE
     Route: 033
  3. DOXORUBICIN HYDROCHLORIDE. [Suspect]
     Active Substance: DOXORUBICIN HYDROCHLORIDE
     Indication: FALLOPIAN TUBE CANCER
     Dosage: 1, 8, 15, AND 22 OF A 28 DAY CYCLE
     Route: 042
  4. DOXORUBICIN HYDROCHLORIDE. [Suspect]
     Active Substance: DOXORUBICIN HYDROCHLORIDE
     Indication: FALLOPIAN TUBE CANCER
     Route: 042
  5. DOXORUBICIN HYDROCHLORIDE. [Suspect]
     Active Substance: DOXORUBICIN HYDROCHLORIDE
     Indication: OVARIAN EPITHELIAL CANCER
     Dosage: 1, 8, 15, AND 22 OF A 28 DAY CYCLE
     Route: 042
  6. EGEN-001 [Suspect]
     Active Substance: INVESTIGATIONAL PRODUCT
     Indication: FALLOPIAN TUBE CANCER
     Dosage: ON DAYS 1, 8, 15, AND 22 OF A 28 DAY CYCLE
     Route: 033
  7. EGEN-001 [Suspect]
     Active Substance: INVESTIGATIONAL PRODUCT
     Indication: OVARIAN EPITHELIAL CANCER
     Dosage: ON DAYS 1, 8, 15, AND 22 OF A 28 DAY CYCLE
     Route: 033
  8. EGEN-001 [Suspect]
     Active Substance: INVESTIGATIONAL PRODUCT
     Indication: FALLOPIAN TUBE CANCER
     Dosage: ON DAYS 1, 8, 15, AND 22 OF A 28 DAY CYCLE
     Route: 033
  9. DOXORUBICIN HYDROCHLORIDE. [Suspect]
     Active Substance: DOXORUBICIN HYDROCHLORIDE
     Indication: MALIGNANT PERITONEAL NEOPLASM
     Route: 042
  10. DOXORUBICIN HYDROCHLORIDE. [Suspect]
     Active Substance: DOXORUBICIN HYDROCHLORIDE
     Indication: OVARIAN EPITHELIAL CANCER
     Route: 042
  11. DOXORUBICIN HYDROCHLORIDE. [Suspect]
     Active Substance: DOXORUBICIN HYDROCHLORIDE
     Indication: MALIGNANT PERITONEAL NEOPLASM
     Route: 042
  12. DOXORUBICIN HYDROCHLORIDE. [Suspect]
     Active Substance: DOXORUBICIN HYDROCHLORIDE
     Indication: FALLOPIAN TUBE CANCER
     Route: 042
  13. EGEN-001 [Suspect]
     Active Substance: INVESTIGATIONAL PRODUCT
     Indication: MALIGNANT PERITONEAL NEOPLASM
     Dosage: ON DAYS 1, 8, 15, AND 22 OF A 28 DAY CYCLE
     Route: 033
  14. DOXORUBICIN HYDROCHLORIDE. [Suspect]
     Active Substance: DOXORUBICIN HYDROCHLORIDE
     Indication: MALIGNANT PERITONEAL NEOPLASM
     Dosage: 1, 8, 15, AND 22 OF A 28 DAY CYCLE
     Route: 042
  15. EGEN-001 [Suspect]
     Active Substance: INVESTIGATIONAL PRODUCT
     Indication: FALLOPIAN TUBE CANCER
     Dosage: ON DAYS 1, 8, 15, AND 22 OF A 28 DAY CYCLE
     Route: 033
  16. EGEN-001 [Suspect]
     Active Substance: INVESTIGATIONAL PRODUCT
     Indication: OVARIAN EPITHELIAL CANCER
     Dosage: ON DAYS 1, 8, 15, AND 22 OF A 28 DAY CYCLE
     Route: 033
  17. DOXORUBICIN HYDROCHLORIDE. [Suspect]
     Active Substance: DOXORUBICIN HYDROCHLORIDE
     Indication: OVARIAN EPITHELIAL CANCER
     Route: 042
  18. EGEN-001 [Suspect]
     Active Substance: INVESTIGATIONAL PRODUCT
     Indication: OVARIAN EPITHELIAL CANCER
     Dosage: ON DAYS 1, 8, 15, AND 22 OF A 28 DAY CYCLE
     Route: 033

REACTIONS (9)
  - Influenza like illness [Unknown]
  - Injection site reaction [Unknown]
  - Off label use [Unknown]
  - Infusion related reaction [Unknown]
  - Abdominal pain [Unknown]
  - Pyrexia [Unknown]
  - Product use issue [Unknown]
  - Neutropenia [Unknown]
  - Anaemia [Unknown]
